FAERS Safety Report 25423107 (Version 1)
Quarter: 2025Q2

REPORT INFORMATION
  Report Type: Spontaneous
  Country: US (occurrence: None)
  Receive Date: 20250610
  Receipt Date: 20250610
  Transmission Date: 20250717
  Serious: Yes (Death)
  Sender: FDA-CTU
  Company Number: None

PATIENT
  Age: 75 Year
  Sex: Male
  Weight: 127 kg

DRUGS (1)
  1. APIXABAN [Suspect]
     Active Substance: APIXABAN
     Indication: Atrial fibrillation
     Dates: start: 20230602, end: 20241208

REACTIONS (8)
  - Cerebral haemorrhage [None]
  - Fall [None]
  - Humerus fracture [None]
  - Alcohol abuse [None]
  - Cerebrovascular accident [None]
  - Anaemia [None]
  - Subdural haematoma [None]
  - Subarachnoid haemorrhage [None]

NARRATIVE: CASE EVENT DATE: 20241208
